FAERS Safety Report 10258634 (Version 2)
Quarter: 2014Q2

REPORT INFORMATION
  Report Type: Spontaneous
  Country: US (occurrence: US)
  Receive Date: 20140625
  Receipt Date: 20140625
  Transmission Date: 20141212
  Serious: Yes (Hospitalization, Other)
  Sender: FDA-Public Use
  Company Number: US-PFIZER INC-2014155496

PATIENT
  Age: 24 Year
  Sex: Male

DRUGS (4)
  1. HYDROXYZINE PAMOATE [Suspect]
     Indication: RASH GENERALISED
     Dosage: UNK
     Dates: start: 20140606
  2. TRIAMCINOLONE ACETONIDE [Suspect]
     Indication: RASH GENERALISED
     Dosage: UNK
     Dates: start: 20140606
  3. EQUETRO [Suspect]
     Dosage: 200 MG, 2X/DAY
     Dates: start: 20140512, end: 20140603
  4. PREDNISONE [Suspect]
     Indication: RASH GENERALISED
     Dosage: UNK
     Dates: start: 20140606

REACTIONS (3)
  - Rash generalised [Not Recovered/Not Resolved]
  - Acute generalised exanthematous pustulosis [Not Recovered/Not Resolved]
  - Acute hepatic failure [Not Recovered/Not Resolved]
